FAERS Safety Report 18213398 (Version 1)
Quarter: 2020Q3

REPORT INFORMATION
  Report Type: Spontaneous
  Country: US (occurrence: US)
  Receive Date: 20200831
  Receipt Date: 20200831
  Transmission Date: 20201103
  Serious: No
  Sender: FDA-Public Use
  Company Number: US-VERTEX PHARMACEUTICALS-2020-017283

PATIENT
  Sex: Male
  Weight: 47 kg

DRUGS (5)
  1. TRIKAFTA [Suspect]
     Active Substance: ELEXACAFTOR\IVACAFTOR\TEZACAFTOR
     Indication: CYSTIC FIBROSIS
     Dosage: 100MG ELEXACAFTOR/50MG TEZACAFTOR/75MG IVACAFTOR, UNKNOWN DOSAGE REGIMEN
     Route: 048
  2. VALIUM [Concomitant]
     Active Substance: DIAZEPAM
     Dosage: 10 MG
  3. PULMOZYME [Concomitant]
     Active Substance: DORNASE ALFA
     Dosage: UNK
  4. OMEPRAZOLE. [Concomitant]
     Active Substance: OMEPRAZOLE
     Dosage: 20 MG
  5. MELATONIN [Concomitant]
     Active Substance: MELATONIN
     Dosage: 1 MG

REACTIONS (1)
  - Infection [Unknown]

NARRATIVE: CASE EVENT DATE: 2020
